FAERS Safety Report 18056457 (Version 1)
Quarter: 2020Q3

REPORT INFORMATION
  Report Type: Spontaneous
  Country: US (occurrence: US)
  Receive Date: 20200722
  Receipt Date: 20200722
  Transmission Date: 20201103
  Serious: Yes (Life-Threatening, Hospitalization, Disabling, Other)
  Sender: FDA-Public Use
  Company Number: US-PURDUE-USA-2020-0158351

PATIENT
  Sex: Male

DRUGS (5)
  1. MS CONTIN [Suspect]
     Active Substance: MORPHINE SULFATE
     Indication: PAIN
     Dosage: UNK
     Route: 048
  2. COCAINE [Suspect]
     Active Substance: COCAINE
     Indication: PRODUCT USED FOR UNKNOWN INDICATION
     Dosage: UNK
     Route: 065
     Dates: start: 2017
  3. OXYCONTIN [Suspect]
     Active Substance: OXYCODONE HYDROCHLORIDE
     Indication: PAIN
     Dosage: UNK
     Route: 048
  4. HEROIN [Suspect]
     Active Substance: DIAMORPHINE
     Indication: PRODUCT USED FOR UNKNOWN INDICATION
     Dosage: UNK
     Route: 065
     Dates: start: 2017
  5. DILAUDID [Suspect]
     Active Substance: HYDROMORPHONE HYDROCHLORIDE
     Indication: PAIN
     Dosage: UNK
     Route: 048

REACTIONS (22)
  - Suicide attempt [Unknown]
  - Suicidal ideation [Unknown]
  - Hypoaesthesia [Unknown]
  - Anal incontinence [Unknown]
  - Emotional distress [None]
  - Depression [Unknown]
  - Product prescribing issue [Unknown]
  - Nerve degeneration [Unknown]
  - Sexual dysfunction [Unknown]
  - Urinary incontinence [Unknown]
  - Stress [Unknown]
  - Autophobia [Unknown]
  - Pain [Unknown]
  - Deformity [Unknown]
  - Rehabilitation therapy [Unknown]
  - Drug abuse [Unknown]
  - Erectile dysfunction [Unknown]
  - Tissue injury [Unknown]
  - Anal sphincter atony [Unknown]
  - Radiation proctitis [Unknown]
  - Drug dependence [Unknown]
  - Micturition urgency [Unknown]

NARRATIVE: CASE EVENT DATE: 201807
